FAERS Safety Report 14176278 (Version 1)
Quarter: 2017Q4

REPORT INFORMATION
  Report Type: Spontaneous
  Country: ES (occurrence: ES)
  Receive Date: 20171109
  Receipt Date: 20171109
  Transmission Date: 20180321
  Serious: Yes (Other)
  Sender: FDA-Public Use
  Company Number: ES-009507513-1711ESP000940

PATIENT
  Age: 68 Year
  Sex: Male

DRUGS (5)
  1. URALYT URATO [Concomitant]
     Route: 048
  2. ATOZET 10 MG/40 MG COMPRIMIDOS RECUBIERTOS CON PELICULA [Suspect]
     Active Substance: ATORVASTATIN CALCIUM\EZETIMIBE
     Route: 048
     Dates: start: 20160901, end: 20171020
  3. ADIRO [Concomitant]
     Active Substance: ASPIRIN
     Indication: PROPHYLAXIS
     Dosage: 300 MG, QD
     Route: 048
     Dates: start: 20150703, end: 20171020
  4. OMEPRAZOLE. [Concomitant]
     Active Substance: OMEPRAZOLE
     Route: 048
     Dates: start: 20150703
  5. RAMIPRIL. [Concomitant]
     Active Substance: RAMIPRIL
     Indication: ISCHAEMIC CARDIOMYOPATHY
     Dosage: 2.5 MG, QD
     Route: 048

REACTIONS (2)
  - Myalgia [Unknown]
  - Erectile dysfunction [Unknown]

NARRATIVE: CASE EVENT DATE: 201703
